FAERS Safety Report 5532794-6 (Version None)
Quarter: 2007Q4

REPORT INFORMATION
  Report Type: 
  Country: None (occurrence: None)
  Receive Date: 20071129
  Receipt Date: 20071119
  Transmission Date: 20080405
  Serious: Yes (Death, Life-Threatening, Hospitalization)
  Sender: FDA-Public Use
  Company Number: S07-USA-01560-01

PATIENT
  Age: 82 Year
  Sex: Female

DRUGS (10)
  1. NAMENDA [Suspect]
     Indication: DEMENTIA
     Dosage: 5 MG BID PO
     Route: 048
     Dates: start: 20070407, end: 20070411
  2. NAMENDA [Suspect]
     Indication: DEMENTIA
     Dosage: 5 MG BID PO
     Route: 048
     Dates: start: 20070101, end: 20070524
  3. CLONIDINE [Concomitant]
  4. DIOVAN [Concomitant]
  5. METOPROLOL [Concomitant]
  6. PROCARDIA [Concomitant]
  7. AMARYL [Concomitant]
  8. NITROGLYCERIN [Concomitant]
  9. SEROQUEL (QUETIAPIE FUMARATE) [Concomitant]
  10. DESYREL [Concomitant]

REACTIONS (16)
  - ASCITES [None]
  - BLOOD GLUCOSE FLUCTUATION [None]
  - CARDIO-RESPIRATORY ARREST [None]
  - CARDIOMEGALY [None]
  - COAGULOPATHY [None]
  - DISORIENTATION [None]
  - DYSPNOEA [None]
  - FALL [None]
  - HIP FRACTURE [None]
  - HYPERTENSION [None]
  - MENTAL STATUS CHANGES [None]
  - MYOCARDIAL INFARCTION [None]
  - NEPHROLITHIASIS [None]
  - RENAL FAILURE ACUTE [None]
  - TACHYCARDIA [None]
  - URINARY TRACT INFECTION [None]
